FAERS Safety Report 9270983 (Version 1)
Quarter: 2013Q2

REPORT INFORMATION
  Report Type: Spontaneous
  Country: NL (occurrence: NL)
  Receive Date: 20130506
  Receipt Date: 20130506
  Transmission Date: 20140414
  Serious: Yes (Death, Hospitalization)
  Sender: FDA-Public Use
  Company Number: NL-CELGENEUS-114-21880-13044198

PATIENT
  Age: 53 Year
  Sex: Female

DRUGS (2)
  1. REVLIMID [Suspect]
     Indication: PLASMA CELL MYELOMA
     Route: 048
  2. REVLIMID [Suspect]
     Route: 048

REACTIONS (1)
  - Plasma cell myeloma [Fatal]
